FAERS Safety Report 6078074-4 (Version None)
Quarter: 2009Q1

REPORT INFORMATION
  Report Type: 
  Country: None (occurrence: None)
  Receive Date: 20090213
  Receipt Date: 20090206
  Transmission Date: 20090719
  Serious: Yes (Other)
  Sender: FDA-Public Use
  Company Number: US-BAYER-200910195BCC

PATIENT
  Age: 60 Year
  Sex: Female
  Weight: 64 kg

DRUGS (13)
  1. ALEVE [Suspect]
     Indication: INTERVERTEBRAL DISC OPERATION
     Dates: start: 19940101, end: 20070701
  2. ALEVE [Suspect]
     Dosage: UNIT DOSE: 220 MG
     Dates: start: 20070701, end: 20080901
  3. NAPROSYN [Suspect]
     Indication: PAIN
  4. LOTREL [Concomitant]
  5. ACEBUTOLOL [Concomitant]
  6. BUSPAR [Concomitant]
  7. PROVIGIL [Concomitant]
  8. STRATTERA [Concomitant]
  9. PERIACTIN [Concomitant]
  10. PROMETRIUM [Concomitant]
  11. VIVELLE-DOT [Concomitant]
  12. VITAMINS [Concomitant]
  13. ZANTAC [Concomitant]

REACTIONS (3)
  - GASTRIC ULCER [None]
  - GASTROOESOPHAGEAL REFLUX DISEASE [None]
  - NAUSEA [None]
